FAERS Safety Report 5308860-7 (Version None)
Quarter: 2007Q2

REPORT INFORMATION
  Report Type: 
  Country: None (occurrence: None)
  Receive Date: 20070426
  Receipt Date: 20070416
  Transmission Date: 20071010
  Serious: Yes (Other)
  Sender: FDA-Public Use
  Company Number: ZA-PFIZER INC-2007031236

PATIENT
  Age: 76 Year
  Sex: Female

DRUGS (2)
  1. DETRUSITOL SR [Suspect]
     Indication: HYPERTONIC BLADDER
  2. CALCIUM [Concomitant]

REACTIONS (1)
  - CATARACT [None]
